FAERS Safety Report 10925738 (Version 2)
Quarter: 2015Q4

REPORT INFORMATION
  Report Type: Other
  Country: US (occurrence: US)
  Receive Date: 20150318
  Receipt Date: 20151202
  Transmission Date: 20160304
  Serious: Yes (Hospitalization)
  Sender: FDA-Public Use
  Company Number: US-ACTELION-A-US2015-114804

PATIENT
  Age: 25 Year
  Sex: Female
  Weight: 228 kg

DRUGS (2)
  1. SILDENAFIL. [Concomitant]
     Active Substance: SILDENAFIL
     Dosage: UNK
  2. VENTAVIS [Suspect]
     Active Substance: ILOPROST
     Indication: PULMONARY HYPERTENSION
     Dosage: 5 MCG, Q2HR, =/{9 TIMES DAILY
     Route: 055

REACTIONS (3)
  - Live birth [Unknown]
  - Pregnancy [Recovered/Resolved]
  - Pulmonary oedema [Unknown]
